FAERS Safety Report 23517992 (Version 1)
Quarter: 2024Q1

REPORT INFORMATION
  Report Type: Spontaneous
  Country: US (occurrence: US)
  Receive Date: 20240213
  Receipt Date: 20240213
  Transmission Date: 20240409
  Serious: No
  Sender: FDA-Public Use
  Company Number: US-GLENMARK PHARMACEUTICALS-2023GMK084950

PATIENT

DRUGS (1)
  1. CLOTRIMAZOLE CREAM 1% [Suspect]
     Active Substance: CLOTRIMAZOLE
     Indication: Scrotal dermatitis
     Dosage: UNK
     Route: 061

REACTIONS (4)
  - Application site scab [Unknown]
  - Application site discomfort [Unknown]
  - Product use in unapproved indication [Unknown]
  - Application site pain [Unknown]
